FAERS Safety Report 7231790-0 (Version None)
Quarter: 2011Q1

REPORT INFORMATION
  Report Type: 
  Country: None (occurrence: None)
  Receive Date: 20110118
  Receipt Date: 20110105
  Transmission Date: 20110831
  Serious: No
  Sender: FDA-Public Use
  Company Number: US-B.I. PHARMACEUTICALS,INC./RIDGEFIELD-2010-BP-06823BP

PATIENT
  Sex: Female

DRUGS (5)
  1. VITAMIN TAB [Concomitant]
     Indication: ROUTINE HEALTH MAINTENANCE
     Dosage: GUMMY BEAR
     Route: 048
     Dates: start: 19800101
  2. CALCIUM [Concomitant]
     Indication: ROUTINE HEALTH MAINTENANCE
     Dosage: 1000 MG
     Route: 048
     Dates: start: 20000101
  3. LEVOXYL [Concomitant]
     Indication: THYROID DISORDER
     Dosage: 0.75 MG
     Route: 048
     Dates: start: 19780101
  4. LOVAZA [Concomitant]
     Indication: ROUTINE HEALTH MAINTENANCE
     Route: 048
     Dates: start: 20100501
  5. SPIRIVA [Suspect]
     Indication: CHRONIC OBSTRUCTIVE PULMONARY DISEASE
     Dosage: 18 MCG
     Route: 055
     Dates: start: 20080101

REACTIONS (4)
  - VITAMIN D DEFICIENCY [None]
  - DIPLOPIA [None]
  - WHEEZING [None]
  - COUGH [None]
